FAERS Safety Report 15690793 (Version 1)
Quarter: 2018Q4

REPORT INFORMATION
  Report Type: Spontaneous
  Country: HR (occurrence: HR)
  Receive Date: 20181205
  Receipt Date: 20181205
  Transmission Date: 20190205
  Serious: Yes (Hospitalization)
  Sender: FDA-Public Use
  Company Number: HR-ASTRAZENECA-2018SF55596

PATIENT
  Age: 54 Year
  Sex: Female
  Weight: 66 kg

DRUGS (17)
  1. NORMABEL [Concomitant]
     Active Substance: DIAZEPAM
     Dosage: 5.0MG UNKNOWN
     Route: 048
  2. ISOPTO TEARS [Concomitant]
     Active Substance: HYPROMELLOSE 2910 (4000 MPA.S)
     Route: 047
  3. EUTHYROX [Concomitant]
     Active Substance: LEVOTHYROXINE SODIUM
     Dosage: 75UG/INHAL DAILY
     Route: 048
  4. CONCOR COR [Concomitant]
     Active Substance: BISOPROLOL FUMARATE
  5. ROSUVASTATIN CALCIUM. [Suspect]
     Active Substance: ROSUVASTATIN CALCIUM
     Indication: HYPERLIPIDAEMIA
     Route: 048
     Dates: start: 20160701, end: 20180523
  6. HUMIRA [Suspect]
     Active Substance: ADALIMUMAB
     Indication: RHEUMATOID ARTHRITIS
     Route: 058
     Dates: start: 201808, end: 20181105
  7. MINIRIN [Concomitant]
     Active Substance: DESMOPRESSIN ACETATE
     Dosage: 20UG/INHAL DAILY
     Route: 045
  8. ARAVA [Suspect]
     Active Substance: LEFLUNOMIDE
     Route: 048
     Dates: start: 20090501, end: 20180523
  9. CONTROLOC [Concomitant]
     Active Substance: PANTOPRAZOLE SODIUM
     Route: 048
  10. SYMBICORT [Concomitant]
     Active Substance: BUDESONIDE\FORMOTEROL FUMARATE DIHYDRATE
     Route: 055
  11. SULFASALAZINE. [Suspect]
     Active Substance: SULFASALAZINE
     Indication: RHEUMATOID ARTHRITIS
     Route: 048
     Dates: start: 20070101, end: 20180523
  12. LERCANIDIPINE HYDROCHLORIDE [Concomitant]
     Active Substance: LERCANIDIPINE HYDROCHLORIDE
     Route: 048
  13. BRUFEN [Concomitant]
     Active Substance: IBUPROFEN
     Dosage: 600.0MG UNKNOWN
     Route: 048
  14. DECORTIN [Concomitant]
     Active Substance: PREDNISONE
     Route: 048
  15. HUMIRA [Suspect]
     Active Substance: ADALIMUMAB
     Indication: RHEUMATOID ARTHRITIS
     Route: 058
     Dates: start: 20161101, end: 20180510
  16. COLECALCIFEROL [Concomitant]
     Active Substance: CHOLECALCIFEROL
     Route: 048
  17. LOSARTIC [Concomitant]
     Active Substance: LOSARTAN POTASSIUM

REACTIONS (2)
  - Hepatic lesion [Recovered/Resolved]
  - Drug ineffective [Recovered/Resolved]

NARRATIVE: CASE EVENT DATE: 2018
